FAERS Safety Report 9863953 (Version 4)
Quarter: 2014Q2

REPORT INFORMATION
  Report Type: Spontaneous
  Country: US (occurrence: US)
  Receive Date: 20140203
  Receipt Date: 20140523
  Transmission Date: 20141212
  Serious: Yes (Hospitalization)
  Sender: FDA-Public Use
  Company Number: US-009507513-1202USA00423

PATIENT
  Sex: Male

DRUGS (1)
  1. PROPECIA [Suspect]
     Indication: ANDROGENETIC ALOPECIA
     Dosage: 1 MG, QD
     Route: 048
     Dates: start: 19990108, end: 20070815

REACTIONS (17)
  - Procedural complication [Unknown]
  - Cognitive disorder [Unknown]
  - Ear operation [Unknown]
  - Sexual dysfunction [Unknown]
  - Erectile dysfunction [Unknown]
  - Libido decreased [Unknown]
  - Acute sinusitis [Unknown]
  - Essential hypertension [Unknown]
  - Benign prostatic hyperplasia [Unknown]
  - Goitre [Unknown]
  - Disturbance in sexual arousal [Unknown]
  - Acute sinusitis [Unknown]
  - Hyperlipidaemia [Unknown]
  - Muscle strain [Unknown]
  - Myalgia [Unknown]
  - Myositis [Unknown]
  - Pharyngitis streptococcal [Unknown]
